FAERS Safety Report 10357275 (Version 4)
Quarter: 2015Q1

REPORT INFORMATION
  Report Type: Spontaneous
  Country: US (occurrence: US)
  Receive Date: 20140801
  Receipt Date: 20150123
  Transmission Date: 20150720
  Serious: Yes (Other)
  Sender: FDA-Public Use
  Company Number: US-PFIZER INC-2014212074

PATIENT
  Age: 85 Year
  Sex: Male
  Weight: 79 kg

DRUGS (5)
  1. TIKOSYN [Suspect]
     Active Substance: DOFETILIDE
     Indication: ATRIAL FIBRILLATION
     Dosage: 250 UG, 2X/DAY
     Dates: start: 2014
  2. TIKOSYN [Suspect]
     Active Substance: DOFETILIDE
     Dosage: UNK
  3. AZOPT [Concomitant]
     Active Substance: BRINZOLAMIDE
  4. LISINOPRIL. [Concomitant]
     Active Substance: LISINOPRIL
     Dosage: 20 MG, DAILY
  5. BYSTOLIC [Concomitant]
     Active Substance: NEBIVOLOL HYDROCHLORIDE
     Dosage: 20 MG, 2X/DAY

REACTIONS (10)
  - Haemorrhagic diathesis [Unknown]
  - Blood pressure increased [Unknown]
  - Petechiae [Unknown]
  - Rash [Unknown]
  - Rash macular [Unknown]
  - Skin atrophy [Unknown]
  - Contusion [Unknown]
  - Hearing impaired [Unknown]
  - Skin lesion [Unknown]
  - Weight decreased [Unknown]

NARRATIVE: CASE EVENT DATE: 2014
